FAERS Safety Report 22345885 (Version 1)
Quarter: 2023Q2

REPORT INFORMATION
  Report Type: Spontaneous
  Country: US (occurrence: None)
  Receive Date: 20230519
  Receipt Date: 20230519
  Transmission Date: 20230722
  Serious: No
  Sender: FDA-Public Use
  Company Number: None

PATIENT
  Age: 38 Year
  Sex: Male
  Weight: 95.25 kg

DRUGS (2)
  1. BUPRENORPHINE AND NALOXONE SUBLINGUAL [Suspect]
     Active Substance: BUPRENORPHINE HYDROCHLORIDE\NALOXONE HYDROCHLORIDE
     Indication: Drug use disorder
     Dosage: OTHER FREQUENCY : 1-2 DAILY;?
     Route: 060
  2. Buprenorphine (Subutex) [Concomitant]

REACTIONS (2)
  - Drug hypersensitivity [None]
  - Impaired gastric emptying [None]
